FAERS Safety Report 9825930 (Version 1)
Quarter: 2013Q4

REPORT INFORMATION
  Report Type: Spontaneous
  Country: US (occurrence: None)
  Receive Date: 20131104
  Receipt Date: 20131104
  Transmission Date: 20140711
  Serious: Yes (Other)
  Sender: FDA-Public Use
  Company Number: 1000048436

PATIENT
  Age: 61 Year
  Sex: Male

DRUGS (8)
  1. DALIRESP (ROFLUMILAST) (500 MICROGRAM, TABLETS) [Suspect]
     Indication: CHRONIC OBSTRUCTIVE PULMONARY DISEASE
     Dosage: 500 MCG EVERY OTHER DAY
     Route: 048
     Dates: start: 201308, end: 201309
  2. LISINOPRIL [Concomitant]
  3. ALBUTEROL [Concomitant]
  4. ADVAIR [Concomitant]
  5. SPIRIVA [Concomitant]
  6. MAGNESIUM CITRATE [Concomitant]
  7. PREDNISONE [Concomitant]
  8. MUCINEX [Concomitant]

REACTIONS (3)
  - Lymphadenopathy [None]
  - Diarrhoea [None]
  - Dizziness [None]
